FAERS Safety Report 16841415 (Version 1)
Quarter: 2019Q3

REPORT INFORMATION
  Report Type: Report from Study
  Country: US (occurrence: US)
  Receive Date: 20190923
  Receipt Date: 20190923
  Transmission Date: 20191005
  Serious: Yes (Other)
  Sender: FDA-Public Use
  Company Number: US-GLAXOSMITHKLINE-2019-TSO02354-US

PATIENT
  Age: 57 Year
  Sex: Female

DRUGS (1)
  1. NIRAPARIB [Suspect]
     Active Substance: NIRAPARIB
     Dosage: 200 MG, QD
     Route: 048
     Dates: start: 20190622, end: 20190906

REACTIONS (9)
  - Product use in unapproved indication [Unknown]
  - Malignant neoplasm progression [Unknown]
  - Sleep disorder [Unknown]
  - Nausea [Not Recovered/Not Resolved]
  - Vision blurred [Unknown]
  - Decreased appetite [Not Recovered/Not Resolved]
  - Rash pruritic [Recovered/Resolved]
  - Somnolence [Recovered/Resolved]
  - Myalgia [Unknown]

NARRATIVE: CASE EVENT DATE: 201907
